FAERS Safety Report 4290904-5 (Version None)
Quarter: 2004Q1

REPORT INFORMATION
  Report Type: 
  Country: None (occurrence: None)
  Receive Date: 20040209
  Receipt Date: 20040130
  Transmission Date: 20041129
  Serious: Yes (Other)
  Sender: FDA-Public Use
  Company Number: IN-JNJFOC-20040200584

PATIENT
  Sex: Male
  Weight: 90 kg

DRUGS (5)
  1. REOPRO [Suspect]
     Indication: STENT PLACEMENT
     Dosage: INJECTION
  2. ASPIRIN [Concomitant]
  3. CLOPIDOGREL BISULFATE [Concomitant]
  4. ANTIANGINALS (GLYCERYL TRINITRATE) [Concomitant]
  5. INSULIN [Concomitant]

REACTIONS (1)
  - INCREASED INSULIN REQUIREMENT [None]
